FAERS Safety Report 4666950-6 (Version None)
Quarter: 2005Q2

REPORT INFORMATION
  Report Type: 
  Country: None (occurrence: None)
  Receive Date: 20050518
  Receipt Date: 20041019
  Transmission Date: 20051028
  Serious: Yes (Other)
  Sender: FDA-Public Use
  Company Number: 2004209092US

PATIENT
  Age: 21 Year
  Sex: Female

DRUGS (5)
  1. DEPO-PROVERA [Suspect]
     Indication: CONTRACEPTION
     Dosage: 1ST INJECTION
     Dates: start: 20030314, end: 20030314
  2. DEPO-PROVERA [Suspect]
     Dosage: 2ND INJECTION
     Dates: start: 20030606, end: 20030606
  3. DEPO-PROVERA [Suspect]
     Dosage: 3RD INJECTION
     Dates: start: 20030826, end: 20030826
  4. DEPO-PROVERA [Suspect]
     Dosage: 4TH INJECTION
     Dates: start: 20031120, end: 20031120
  5. DEPO-PROVERA [Suspect]
     Dosage: LAST INJECTION
     Dates: start: 20040210, end: 20040210

REACTIONS (1)
  - UNINTENDED PREGNANCY [None]
